FAERS Safety Report 11780484 (Version 2)
Quarter: 2015Q4

REPORT INFORMATION
  Report Type: Spontaneous
  Country: US (occurrence: US)
  Receive Date: 20151126
  Receipt Date: 20151126
  Transmission Date: 20160305
  Serious: No
  Sender: FDA-Public Use
  Company Number: US-HOSPIRA-2550861

PATIENT
  Sex: Male

DRUGS (2)
  1. BUPIVACAINE HYDROCHLORIDE. [Suspect]
     Active Substance: BUPIVACAINE HYDROCHLORIDE
     Indication: POSTOPERATIVE CARE
     Dosage: NOT REPORTED, NOT REPORTED
     Route: 041
     Dates: start: 20140910
  2. FENTANYL CITRATE. [Suspect]
     Active Substance: FENTANYL CITRATE
     Indication: POSTOPERATIVE CARE
     Dosage: NOT REPORTED, NOT REPORTED
     Route: 041
     Dates: start: 20140910

REACTIONS (3)
  - Therapy cessation [Recovered/Resolved]
  - Circumstance or information capable of leading to medication error [Recovered/Resolved]
  - No adverse event [None]

NARRATIVE: CASE EVENT DATE: 20140910
